FAERS Safety Report 9194638 (Version 1)
Quarter: 2013Q1

REPORT INFORMATION
  Report Type: Spontaneous
  Country: US (occurrence: US)
  Receive Date: 20130328
  Receipt Date: 20130328
  Transmission Date: 20140127
  Serious: No
  Sender: FDA-Public Use
  Company Number: US-ALLERGAN-1209635US

PATIENT
  Age: 66 Year
  Sex: Female

DRUGS (4)
  1. LATISSE 0.03% [Suspect]
     Indication: GROWTH OF EYELASHES
     Dosage: 2 GTT, QD
     Route: 061
  2. LATISSE 0.03% [Suspect]
     Dosage: 2 GTT, QOD
     Route: 061
  3. PROTOPIC [Concomitant]
     Indication: ALOPECIA
     Dosage: UNK
     Route: 061
     Dates: start: 2010
  4. CLOBETASOL [Concomitant]
     Indication: ALOPECIA
     Dosage: UNK
     Route: 061
     Dates: start: 2010

REACTIONS (6)
  - Inappropriate schedule of drug administration [Unknown]
  - Hair disorder [Not Recovered/Not Resolved]
  - Hair texture abnormal [Not Recovered/Not Resolved]
  - Hair growth abnormal [Not Recovered/Not Resolved]
  - Hair growth abnormal [Not Recovered/Not Resolved]
  - Blepharal pigmentation [Recovered/Resolved]
